FAERS Safety Report 8896110 (Version 2)
Quarter: 2012Q4

REPORT INFORMATION
  Report Type: 
  Country: AU (occurrence: AU)
  Receive Date: 20121108
  Receipt Date: 20121205
  Transmission Date: 20130627
  Serious: Yes (Hospitalization)
  Sender: FDA-Public Use
  Company Number: PHHY2012AU102378

PATIENT
  Age: 84 Year
  Sex: Male

DRUGS (5)
  1. ACLASTA [Suspect]
     Indication: OSTEITIS DEFORMANS
     Dosage: 5 mg, UNK
     Route: 042
     Dates: start: 20120711
  2. KARVEZIDE [Concomitant]
     Route: 048
  3. CRESTOR [Concomitant]
     Route: 048
  4. SOMA [Concomitant]
     Route: 048
  5. PANADOL OSTEO [Concomitant]
     Route: 048

REACTIONS (1)
  - Gastrointestinal haemorrhage [Recovered/Resolved]
